FAERS Safety Report 10071200 (Version 1)
Quarter: 2014Q2

REPORT INFORMATION
  Report Type: Spontaneous
  Country: US (occurrence: US)
  Receive Date: 20140410
  Receipt Date: 20140410
  Transmission Date: 20141212
  Serious: No
  Sender: FDA-Public Use
  Company Number: US-GALDERMA-US13003322

PATIENT
  Age: 52 Year
  Sex: Female

DRUGS (2)
  1. DIFFERIN (ADAPALENE) LOTION 0.1% [Suspect]
     Indication: ACNE
     Route: 061
     Dates: start: 2010, end: 2010
  2. NEUTROGENA OIL FREE FACE WASH [Concomitant]
     Indication: THERAPEUTIC SKIN CARE TOPICAL
     Route: 061
     Dates: start: 2010

REACTIONS (1)
  - Dry skin [Recovered/Resolved]
